FAERS Safety Report 23374675 (Version 1)
Quarter: 2024Q1

REPORT INFORMATION
  Report Type: Spontaneous
  Country: IT (occurrence: IT)
  Receive Date: 20240105
  Receipt Date: 20240105
  Transmission Date: 20240410
  Serious: Yes (Hospitalization)
  Sender: FDA-Public Use
  Company Number: None

PATIENT
  Age: 66 Year
  Sex: Female
  Weight: 86 kg

DRUGS (13)
  1. HUMALOG [Suspect]
     Active Substance: INSULIN LISPRO
     Indication: Type 2 diabetes mellitus
     Dosage: DOSAGGIO: 64UNITA DI MISURA: UNITA INTERNAZIONALI INFERIORI A 100FREQUENZA SOMMINISTRAZIONE: QUOTIDI
     Route: 058
  2. METFORMIN HYDROCHLORIDE [Suspect]
     Active Substance: METFORMIN HYDROCHLORIDE
     Indication: Type 2 diabetes mellitus
     Dosage: DOSAGGIO: 1500UNITA DI MISURA: MILLIGRAMMIFREQUENZA SOMMINISTRAZIONE: QUOTIDIANAVIA SOMMINISTRAZIONE
     Route: 048
  3. TRESIBA [Suspect]
     Active Substance: INSULIN DEGLUDEC
     Indication: Type 2 diabetes mellitus
     Dosage: DOSAGGIO: 54UNITA DI MISURA: UNITA INTERNAZIONALI INFERIORI A 100FREQUENZA SOMMINISTRAZIONE: QUOTIDI
     Route: 058
  4. LITHIUM CARBONATE [Concomitant]
     Active Substance: LITHIUM CARBONATE
     Indication: Mania
     Dosage: DOSAGGIO: 900UNITA DI MISURA: MILLIGRAMMIVIA SOMMINISTRAZIONE: ORALE
     Route: 048
  5. DELORAZEPAM [Concomitant]
     Active Substance: DELORAZEPAM
     Indication: Anxiety
     Dosage: DOSAGGIO: 60UNITA DI MISURA: GOCCEVIA SOMMINISTRAZIONE: ORALE
     Route: 048
  6. FLURAZEPAM MONOHYDROCHLORIDE [Concomitant]
     Active Substance: FLURAZEPAM MONOHYDROCHLORIDE
     Indication: Insomnia
     Dosage: DOSAGGIO: 30UNITA DI MISURA: MILLIGRAMMIVIA SOMMINISTRAZIONE: ORALE
     Route: 048
  7. GABAPENTIN [Concomitant]
     Active Substance: GABAPENTIN
     Indication: Epilepsy
     Dosage: DOSAGGIO: 300UNITA DI MISURA: MILLIGRAMMIVIA SOMMINISTRAZIONE: ORALE
     Route: 048
  8. LAMOTRIGINE [Concomitant]
     Active Substance: LAMOTRIGINE
     Indication: Epilepsy
     Dosage: DOSAGGIO: 200UNITA DI MISURA: MILLIGRAMMIVIA SOMMINISTRAZIONE: ORALE
     Route: 048
  9. LEVOTHYROXINE SODIUM [Concomitant]
     Active Substance: LEVOTHYROXINE SODIUM
     Indication: Hypothyroidism
     Dosage: DOSAGGIO: 50UNITA DI MISURA: MICROGRAMMIVIA SOMMINISTRAZIONE: ORALE
     Route: 048
  10. LEVOTHYROXINE SODIUM [Concomitant]
     Active Substance: LEVOTHYROXINE SODIUM
     Indication: Hypothyroidism
     Dosage: DOSAGGIO: 75UNITA DI MISURA: MICROGRAMMIVIA SOMMINISTRAZIONE: ORALE
     Route: 048
  11. LURASIDONE [Concomitant]
     Active Substance: LURASIDONE
     Indication: Schizophrenia
     Dosage: DOSAGGIO: 18.5UNITA DI MISURA: MILLIGRAMMIVIA SOMMINISTRAZIONE: ORALE
     Route: 048
  12. QUETIAPINE FUMARATE [Concomitant]
     Active Substance: QUETIAPINE FUMARATE
     Indication: Mania
     Dosage: DOSAGGIO: 600UNITA DI MISURA: MILLIGRAMMIVIA SOMMINISTRAZIONE: ORALE
     Route: 048
  13. ROSUVASTATIN [Concomitant]
     Active Substance: ROSUVASTATIN
     Indication: Hypercholesterolaemia
     Dosage: DOSAGGIO: 10UNITA DI MISURA: MILLIGRAMMIVIA SOMMINISTRAZIONE: ORALE
     Route: 048

REACTIONS (1)
  - Hypoglycaemia [Recovered/Resolved]

NARRATIVE: CASE EVENT DATE: 20230311
